FAERS Safety Report 9106380 (Version 1)
Quarter: 2013Q1

REPORT INFORMATION
  Report Type: Other
  Country: GB (occurrence: GB)
  Receive Date: 20130221
  Receipt Date: 20130221
  Transmission Date: 20140127
  Serious: Yes (Disabling)
  Sender: FDA-Public Use
  Company Number: GB-WATSON-2013-02551

PATIENT
  Age: 53 Year
  Sex: Female
  Weight: 158 kg

DRUGS (1)
  1. CLARITHROMYCIN (UNKNOWN) [Suspect]
     Indication: LOWER RESPIRATORY TRACT INFECTION
     Dosage: 500 MG, UNKNOWN
     Route: 065
     Dates: start: 20130108, end: 20130110

REACTIONS (2)
  - Abdominal pain upper [Recovered/Resolved]
  - Dyspnoea [Recovered/Resolved]
